FAERS Safety Report 18191977 (Version 7)
Quarter: 2020Q4

REPORT INFORMATION
  Report Type: Spontaneous
  Country: US (occurrence: US)
  Receive Date: 20200825
  Receipt Date: 20201020
  Transmission Date: 20210113
  Serious: Yes (Death, Hospitalization, Other)
  Sender: FDA-Public Use
  Company Number: US-KARYOPHARM-2020KPT000931

PATIENT

DRUGS (3)
  1. XPOVIO [Suspect]
     Active Substance: SELINEXOR
     Dosage: 60 MG, WEEKLY
     Route: 048
     Dates: start: 202008
  2. ASPIRIN. [Concomitant]
     Active Substance: ASPIRIN
     Indication: PRODUCT USED FOR UNKNOWN INDICATION
  3. XPOVIO [Suspect]
     Active Substance: SELINEXOR
     Indication: PLASMA CELL MYELOMA
     Dosage: 60 MG, WEEKLY
     Route: 048
     Dates: start: 20200811, end: 202008

REACTIONS (13)
  - Nausea [Unknown]
  - Anaemia [Not Recovered/Not Resolved]
  - Pneumonia [Unknown]
  - Thrombocytopenia [Unknown]
  - Pulmonary oedema [Fatal]
  - Dyspnoea [Not Recovered/Not Resolved]
  - Cough [Unknown]
  - Leukopenia [Unknown]
  - Muscle spasms [Unknown]
  - Hypocalcaemia [Unknown]
  - Hyperkalaemia [Fatal]
  - Pyrexia [Unknown]
  - Hypercreatininaemia [Unknown]

NARRATIVE: CASE EVENT DATE: 202008
